FAERS Safety Report 11051260 (Version 1)
Quarter: 2015Q2

REPORT INFORMATION
  Report Type: Spontaneous
  Country: US (occurrence: None)
  Receive Date: 20150420
  Receipt Date: 20150420
  Transmission Date: 20150821
  Serious: Yes (Hospitalization)
  Sender: FDA-Public Use
  Company Number: None

PATIENT
  Age: 43 Year
  Sex: Female

DRUGS (1)
  1. HUMIRA [Suspect]
     Active Substance: ADALIMUMAB
     Indication: RHEUMATOID ARTHRITIS
     Dosage: ONE SHOT X 2 WEEKS, EVERY OTHER WEEK, INTO THE MUSCLE
     Dates: start: 20150327, end: 20150405

REACTIONS (8)
  - Diarrhoea [None]
  - Abdominal discomfort [None]
  - Vomiting [None]
  - Malaise [None]
  - Infection [None]
  - Mobility decreased [None]
  - Influenza like illness [None]
  - Headache [None]

NARRATIVE: CASE EVENT DATE: 20150404
